FAERS Safety Report 7542965-5 (Version None)
Quarter: 2011Q2

REPORT INFORMATION
  Report Type: 
  Country: None (occurrence: None)
  Receive Date: 20110613
  Receipt Date: 20110601
  Transmission Date: 20111010
  Serious: Yes (Other)
  Sender: FDA-Public Use
  Company Number: PHHY2011DE48670

PATIENT
  Sex: Male

DRUGS (1)
  1. TASIGNA [Suspect]
     Dosage: 600 MG, PER DAY
     Route: 048
     Dates: start: 20110101

REACTIONS (3)
  - ANTIACETYLCHOLINE RECEPTOR ANTIBODY [None]
  - BULBAR PALSY [None]
  - MUSCULAR WEAKNESS [None]
